FAERS Safety Report 15948722 (Version 1)
Quarter: 2019Q1

REPORT INFORMATION
  Report Type: Spontaneous
  Country: GB (occurrence: GB)
  Receive Date: 20190212
  Receipt Date: 20190212
  Transmission Date: 20190417
  Serious: Yes (Disabling)
  Sender: FDA-Public Use
  Company Number: GB-ACCORD-106053

PATIENT
  Age: 57 Year
  Sex: Female

DRUGS (9)
  1. AMLODIPINE [Concomitant]
     Active Substance: AMLODIPINE BESYLATE
  2. SERTRALINE [Suspect]
     Active Substance: SERTRALINE HYDROCHLORIDE
     Indication: MAJOR DEPRESSION
     Dosage: IN THE MORNING
     Route: 048
     Dates: end: 20171022
  3. DIAZEPAM. [Concomitant]
     Active Substance: DIAZEPAM
  4. PROCYCLIDINE [Concomitant]
     Active Substance: PROCYCLIDINE
  5. CARBAMAZEPINE. [Concomitant]
     Active Substance: CARBAMAZEPINE
  6. LEVETIRACETAM. [Concomitant]
     Active Substance: LEVETIRACETAM
  7. HALOPERIDOL. [Concomitant]
     Active Substance: HALOPERIDOL
  8. SERTRALINE [Suspect]
     Active Substance: SERTRALINE HYDROCHLORIDE
     Indication: MAJOR DEPRESSION
     Dosage: IN THE MORNING
     Route: 048
     Dates: start: 20171012
  9. CALCICHEW D3 [Concomitant]
     Active Substance: CALCIUM\CHOLECALCIFEROL

REACTIONS (2)
  - Dystonia [Recovered/Resolved]
  - Screaming [Unknown]

NARRATIVE: CASE EVENT DATE: 20171021
